FAERS Safety Report 11705898 (Version 3)
Quarter: 2016Q3

REPORT INFORMATION
  Report Type: Spontaneous
  Country: US (occurrence: US)
  Receive Date: 20151106
  Receipt Date: 20160830
  Transmission Date: 20161109
  Serious: Yes (Congenital Anomaly, Other)
  Sender: FDA-Public Use
  Company Number: PHEH2015US022636

PATIENT
  Sex: Male

DRUGS (4)
  1. ZOFRAN [Suspect]
     Active Substance: ONDANSETRON HYDROCHLORIDE
     Indication: FOETAL EXPOSURE DURING PREGNANCY
     Route: 064
  2. ONDANSETRON. [Suspect]
     Active Substance: ONDANSETRON
     Indication: FOETAL EXPOSURE DURING PREGNANCY
     Dosage: MOTHER DOSE: 8 MG, TID (EVERY 6 TO 8 HRS)
     Route: 064
  3. ZOFRAN ODT [Suspect]
     Active Substance: ONDANSETRON HYDROCHLORIDE
     Indication: FOETAL EXPOSURE DURING PREGNANCY
     Dosage: MOTHER DOSE: 8 MG, TID (EVERY 6 TO 8 HRS)
     Route: 064
  4. ZOFRAN [Suspect]
     Active Substance: ONDANSETRON HYDROCHLORIDE
     Indication: FOETAL EXPOSURE DURING PREGNANCY
     Route: 064

REACTIONS (15)
  - Foetal exposure during pregnancy [Unknown]
  - Scar [Unknown]
  - Anxiety [Unknown]
  - Ventricular septal defect [Unknown]
  - Right ventricular dilatation [Unknown]
  - Injury [Unknown]
  - Multiple congenital abnormalities [Unknown]
  - Pain [Unknown]
  - Emotional distress [Unknown]
  - Right ventricular hypertrophy [Unknown]
  - Anhedonia [Unknown]
  - Heart disease congenital [Unknown]
  - Cardiac murmur [Unknown]
  - Congenital anomaly [Unknown]
  - Atrial septal defect [Unknown]
